FAERS Safety Report 4457812-8 (Version None)
Quarter: 2004Q3

REPORT INFORMATION
  Report Type: 
  Country: None (occurrence: None)
  Receive Date: 20040922
  Receipt Date: 20040913
  Transmission Date: 20050211
  Serious: Yes (Death, Hospitalization)
  Sender: FDA-Public Use
  Company Number: K200401385

PATIENT
  Age: 89 Year
  Sex: Male

DRUGS (15)
  1. ALTACE [Suspect]
     Indication: VENTRICULAR DYSFUNCTION
     Dosage: 1 DOSAGE FORM, QD, ORAL
     Route: 048
     Dates: start: 20040402, end: 20040413
  2. PLENDIL [Suspect]
     Indication: HYPERTONIA
     Dosage: 5 MG, QD, ORAL
     Route: 048
     Dates: start: 20040326, end: 20040413
  3. KLEXANE (HEPARIN-FRACTION, SODIUM SALT) 1 [Suspect]
     Indication: PROPHYLAXIS
     Dosage: 1 DOSAGE FORM, QD, SUBCUTANEOUS
     Route: 058
     Dates: start: 20040326, end: 20040101
  4. ATENOLOL [Suspect]
     Indication: ANGINA PECTORIS
     Dosage: 100 MG, QD, ORAL
     Route: 048
     Dates: start: 19990101, end: 20040413
  5. LANSOPRAZOLE [Suspect]
     Indication: PROPHYLAXIS
     Dates: start: 20040402, end: 20040413
  6. ASPIRIN [Concomitant]
     Indication: PROPHYLAXIS
     Dosage: 75 MG, QD, ORAL
     Route: 048
     Dates: start: 20040326, end: 20040413
  7. PLAVIX [Suspect]
     Indication: PROPHYLAXIS
     Dosage: 75 MG, QD, ORAL
     Route: 048
     Dates: start: 20040326, end: 20040413
  8. ALVEDON (PARACETAMOL) [Concomitant]
  9. SIMVASTATIN [Concomitant]
  10. WARFARIN SODIUM [Concomitant]
  11. NITROMEX (GLYCERYL TRNITRATE) [Concomitant]
  12. SPIRONOLACTONE [Concomitant]
  13. DEXOFEN ^ASTRA^ (DEXTROPROPOXYPHENE NAPSILATE) [Concomitant]
  14. FUROSEMIDE [Concomitant]
  15. IMDUR [Concomitant]

REACTIONS (22)
  - ANGINA PECTORIS [None]
  - ANOREXIA [None]
  - ASTHENIA [None]
  - BEDRIDDEN [None]
  - BLOOD CREATININE INCREASED [None]
  - BLOOD PRESSURE DECREASED [None]
  - BLOOD PRESSURE DIASTOLIC DECREASED [None]
  - BODY TEMPERATURE INCREASED [None]
  - BRADYCARDIA [None]
  - C-REACTIVE PROTEIN INCREASED [None]
  - CARDIAC FAILURE [None]
  - DEPRESSED LEVEL OF CONSCIOUSNESS [None]
  - ECHOCARDIOGRAM ABNORMAL [None]
  - EXANTHEM [None]
  - GENERAL PHYSICAL HEALTH DETERIORATION [None]
  - HAEMOGLOBIN DECREASED [None]
  - HEART RATE DECREASED [None]
  - MARKEDLY REDUCED DIETARY INTAKE [None]
  - MYOCARDIAL INFARCTION [None]
  - NERVOUS SYSTEM DISORDER [None]
  - PYRUVATE KINASE INCREASED [None]
  - SEBORRHOEIC DERMATITIS [None]
